FAERS Safety Report 6293255-2 (Version None)
Quarter: 2009Q3

REPORT INFORMATION
  Report Type: 
  Country: None (occurrence: None)
  Receive Date: 20090731
  Receipt Date: 20090723
  Transmission Date: 20100115
  Serious: Yes (Hospitalization)
  Sender: FDA-Public Use
  Company Number: US-ABBOTT-09P-163-0586907-00

PATIENT
  Sex: Female

DRUGS (2)
  1. HUMIRA [Suspect]
     Indication: CROHN'S DISEASE
     Route: 058
     Dates: start: 20080101, end: 20090101
  2. PREDNISONE TAB [Suspect]
     Indication: CROHN'S DISEASE

REACTIONS (7)
  - COLECTOMY [None]
  - CROHN'S DISEASE [None]
  - HYPOAESTHESIA [None]
  - SINUSITIS [None]
  - SMALL INTESTINAL RESECTION [None]
  - STAPHYLOCOCCAL INFECTION [None]
  - SWELLING [None]
